FAERS Safety Report 10059175 (Version 11)
Quarter: 2015Q2

REPORT INFORMATION
  Report Type: Report from Study
  Country: US (occurrence: US)
  Receive Date: 20140404
  Receipt Date: 20150616
  Transmission Date: 20150821
  Serious: Yes (Hospitalization, Other)
  Sender: FDA-Public Use
  Company Number: US-ALEXION-A201400964

PATIENT

DRUGS (10)
  1. SOLIRIS [Suspect]
     Active Substance: ECULIZUMAB
     Dosage: 1200 MG, Q3W
     Route: 042
     Dates: start: 20130606, end: 20140520
  2. MORPHINE [Suspect]
     Active Substance: MORPHINE
     Indication: PAIN
     Dosage: 50 MG, 1-2 TABLETS, Q4-6 H
     Route: 048
  3. ASPIRIN. [Concomitant]
     Active Substance: ASPIRIN
     Indication: PRODUCT USED FOR UNKNOWN INDICATION
     Dosage: UNK, QD
     Route: 065
     Dates: start: 20130514
  4. COREG [Concomitant]
     Active Substance: CARVEDILOL
     Indication: HYPERTENSION
     Dosage: UNK, QD
     Route: 065
     Dates: start: 20130101, end: 20140415
  5. METOPROLOL [Concomitant]
     Active Substance: METOPROLOL
     Indication: HYPERTENSION
     Dosage: 200 MG, QD
     Route: 065
     Dates: start: 20140415
  6. SOLIRIS [Suspect]
     Active Substance: ECULIZUMAB
     Dosage: 1200 MG, Q2W
     Route: 042
  7. MORPHINE [Suspect]
     Active Substance: MORPHINE
     Dosage: 50 MG 1/2 TAB Q 4-10 HOURS
     Route: 048
  8. SOLIRIS [Suspect]
     Active Substance: ECULIZUMAB
     Indication: HAEMOLYTIC URAEMIC SYNDROME
     Dosage: 1200 MG, Q2W
     Route: 042
     Dates: start: 20130606
  9. CARDIZEM [Concomitant]
     Active Substance: DILTIAZEM HYDROCHLORIDE
     Indication: HYPERTENSION
     Dosage: UNK, QD
     Route: 065
     Dates: start: 20130101, end: 20140415
  10. SOLIRIS [Suspect]
     Active Substance: ECULIZUMAB
     Dosage: 1200 MG, Q 4 WEEKS
     Route: 042
     Dates: start: 20140520

REACTIONS (26)
  - White blood cell disorder [Unknown]
  - Thrombosis [Unknown]
  - Fatigue [Not Recovered/Not Resolved]
  - Pruritus [Unknown]
  - Blood lactate dehydrogenase abnormal [Unknown]
  - Fatigue [Unknown]
  - Back pain [Recovered/Resolved]
  - Platelet disorder [Unknown]
  - Atrial fibrillation [Unknown]
  - Insomnia [Unknown]
  - Fatigue [Unknown]
  - Blood pressure increased [Unknown]
  - Haemorrhage urinary tract [Not Recovered/Not Resolved]
  - Systemic lupus erythematosus [Unknown]
  - Malaise [Not Recovered/Not Resolved]
  - Pain [Unknown]
  - Fall [Recovered/Resolved]
  - Pain [Unknown]
  - Musculoskeletal stiffness [Unknown]
  - Condition aggravated [Unknown]
  - Fibromyalgia [Recovering/Resolving]
  - Feeling cold [Unknown]
  - Inappropriate schedule of drug administration [Not Recovered/Not Resolved]
  - Cold sweat [Unknown]
  - Contusion [Not Recovered/Not Resolved]
  - Back pain [Unknown]

NARRATIVE: CASE EVENT DATE: 20140312
